FAERS Safety Report 9137237 (Version 1)
Quarter: 2013Q1

REPORT INFORMATION
  Report Type: Spontaneous
  Country: US (occurrence: US)
  Receive Date: 20130219
  Receipt Date: 20130219
  Transmission Date: 20140127
  Serious: No
  Sender: FDA-Public Use
  Company Number: US-BRISTOL-MYERS SQUIBB COMPANY-17142605

PATIENT
  Age: 53 Year
  Sex: Female
  Weight: 83.9 kg

DRUGS (2)
  1. ORENCIA [Suspect]
     Indication: RHEUMATOID ARTHRITIS
     Dosage: LAST INJECTION WAS ON 18NOV2012.
     Route: 042
  2. ABATACEPT SUBQ INJECTION 125MG/ML [Suspect]
     Indication: RHEUMATOID ARTHRITIS
     Route: 058

REACTIONS (4)
  - Headache [Unknown]
  - Skin disorder [Unknown]
  - Abnormal sensation in eye [Recovered/Resolved]
  - Fatigue [Unknown]
